FAERS Safety Report 10438873 (Version 1)
Quarter: 2014Q3

REPORT INFORMATION
  Report Type: Spontaneous
  Country: GB (occurrence: None)
  Receive Date: 20140904
  Receipt Date: 20140904
  Transmission Date: 20150326
  Serious: Yes (Other)
  Sender: FDA-Public Use
  Company Number: ABR_01788_2014

PATIENT
  Age: 31 Year
  Sex: Male
  Weight: 88 kg

DRUGS (4)
  1. ESOMEPRAZOLE [Concomitant]
     Active Substance: ESOMEPRAZOLE
  2. AMITRIPTYLINE [Concomitant]
     Active Substance: AMITRIPTYLINE
  3. ERYTHROMYCIN. [Suspect]
     Active Substance: ERYTHROMYCIN
     Indication: TOOTH INFECTION
     Route: 048
     Dates: start: 20140807, end: 20140809
  4. NEFOPAM [Concomitant]
     Active Substance: NEFOPAM

REACTIONS (6)
  - Sweat gland disorder [None]
  - Vomiting [None]
  - Dyspnoea [None]
  - Fatigue [None]
  - Abdominal pain upper [None]
  - Abdominal distension [None]

NARRATIVE: CASE EVENT DATE: 20140809
